FAERS Safety Report 13634789 (Version 2)
Quarter: 2017Q3

REPORT INFORMATION
  Report Type: Spontaneous
  Country: US (occurrence: US)
  Receive Date: 20170609
  Receipt Date: 20170705
  Transmission Date: 20171127
  Serious: No
  Sender: FDA-Public Use
  Company Number: PHEH2017US017563

PATIENT
  Sex: Female

DRUGS (2)
  1. BIMATOPROST. [Suspect]
     Active Substance: BIMATOPROST
     Indication: GROWTH OF EYELASHES
     Dosage: UNK
     Route: 065
     Dates: start: 20170228
  2. BIMATOPROST. [Suspect]
     Active Substance: BIMATOPROST
     Indication: EYELASH THICKENING

REACTIONS (1)
  - Drug ineffective [Unknown]
